FAERS Safety Report 5951603-4 (Version None)
Quarter: 2008Q4

REPORT INFORMATION
  Report Type: 
  Country: None (occurrence: None)
  Receive Date: 20081113
  Receipt Date: 20081105
  Transmission Date: 20090506
  Serious: Yes (Hospitalization, Other)
  Sender: FDA-Public Use
  Company Number: PHHY2008CH22403

PATIENT
  Sex: Female

DRUGS (6)
  1. EXELON [Suspect]
     Indication: DEMENTIA ALZHEIMER'S TYPE
     Dosage: 9.5 MG, QD
     Route: 062
     Dates: start: 20080501, end: 20081001
  2. MADOPAR [Suspect]
     Dosage: UNK
     Dates: start: 20080501
  3. ACETYLSALICYLIC ACID SRT [Concomitant]
  4. BILOL [Concomitant]
  5. SORTIS ^GOEDECKE^ [Concomitant]
  6. CALCIMAGON [Concomitant]

REACTIONS (5)
  - COLITIS [None]
  - COLONOSCOPY [None]
  - DEHYDRATION [None]
  - DIARRHOEA [None]
  - SYNCOPE [None]
